FAERS Safety Report 11812419 (Version 1)
Quarter: 2015Q4

REPORT INFORMATION
  Report Type: Spontaneous
  Country: JP (occurrence: JP)
  Receive Date: 20151208
  Receipt Date: 20151208
  Transmission Date: 20160305
  Serious: Yes (Other)
  Sender: FDA-Public Use
  Company Number: JP-009507513-2004-03-1802

PATIENT
  Age: 32 Year
  Sex: Female

DRUGS (8)
  1. REBETOL [Suspect]
     Active Substance: RIBAVIRIN
     Dosage: DOSE: 800 MG, DURATION: 24 DAY(S)
     Route: 048
     Dates: start: 20030623, end: 20030716
  2. INTRON A [Suspect]
     Active Substance: INTERFERON ALFA-2B
     Dosage: DOSE: 6 MU, DURATION: 19 DAY(S)
     Route: 030
     Dates: start: 20030623, end: 20030711
  3. REBETOL [Suspect]
     Active Substance: RIBAVIRIN
     Dosage: DOSE: 600 MG, DURATION: 3 MONTH(S)
     Route: 048
     Dates: start: 20030717, end: 20031015
  4. INTRON A [Suspect]
     Active Substance: INTERFERON ALFA-2B
     Dosage: DOSE: 3 MU TIW, DURATION: 3 MONTH(S)
     Route: 030
     Dates: start: 20030716, end: 20031015
  5. INTRON A [Suspect]
     Active Substance: INTERFERON ALFA-2B
     Indication: CHRONIC HEPATITIS C
     Dosage: UNK, UNKNOWN
     Route: 030
     Dates: start: 20030623, end: 20040305
  6. INTRON A [Suspect]
     Active Substance: INTERFERON ALFA-2B
     Dosage: DOSE: 6 MU TIW, DURATION: 2 MONTH(S)
     Route: 030
     Dates: start: 20031231, end: 20040305
  7. REBETOL [Suspect]
     Active Substance: RIBAVIRIN
     Indication: CHRONIC HEPATITIS C
     Dosage: DOSE: 800 - 600 MG*, DURATION: 4 MONTH(S)
     Route: 048
     Dates: start: 20030623, end: 20031015
  8. INTRON A [Suspect]
     Active Substance: INTERFERON ALFA-2B
     Dosage: DOSE: 3 MU TIW, DURATION: 27 DAY(S)
     Route: 030
     Dates: start: 20031204, end: 20031230

REACTIONS (2)
  - Exposure during pregnancy [Unknown]
  - Abortion induced [Unknown]

NARRATIVE: CASE EVENT DATE: 20040413
